FAERS Safety Report 12985497 (Version 1)
Quarter: 2016Q4

REPORT INFORMATION
  Report Type: Spontaneous
  Country: US (occurrence: US)
  Receive Date: 20161130
  Receipt Date: 20161130
  Transmission Date: 20170207
  Serious: Yes (Other)
  Sender: FDA-Public Use
  Company Number: US-TEVA-710392USA

PATIENT
  Sex: Female
  Weight: 69.46 kg

DRUGS (4)
  1. PREDNISONE. [Suspect]
     Active Substance: PREDNISONE
     Indication: PRODUCT USED FOR UNKNOWN INDICATION
  2. DHEA [Concomitant]
     Active Substance: PRASTERONE
  3. MLN0002 (VEDOLIZUMAB) [Concomitant]
     Dosage: POWDER FOR SOLUTION FOR INFUSION
  4. TURMERIC [Concomitant]
     Active Substance: TURMERIC

REACTIONS (2)
  - Swelling face [Not Recovered/Not Resolved]
  - Weight increased [Not Recovered/Not Resolved]
